FAERS Safety Report 7642972-8 (Version None)
Quarter: 2011Q3

REPORT INFORMATION
  Report Type: 
  Country: None (occurrence: None)
  Receive Date: 20110728
  Receipt Date: 20110726
  Transmission Date: 20111222
  Serious: Yes (Life-Threatening)
  Sender: FDA-Public Use
  Company Number: US-BAYER-2011-035180

PATIENT
  Age: 59 Year
  Sex: Female
  Weight: 96.145 kg

DRUGS (3)
  1. CRESTOR [Concomitant]
     Dosage: 10 MG, UNK
  2. AVELOX [Suspect]
     Indication: BRONCHITIS
     Dosage: 400 MG, UNK
     Route: 048
     Dates: start: 20110215, end: 20110219
  3. BENICAR [Concomitant]
     Dosage: 40 MG

REACTIONS (1)
  - ANAPHYLACTIC SHOCK [None]
